FAERS Safety Report 11096671 (Version 1)
Quarter: 2015Q2

REPORT INFORMATION
  Report Type: Spontaneous
  Country: SE (occurrence: SE)
  Receive Date: 20150507
  Receipt Date: 20150507
  Transmission Date: 20150821
  Serious: Yes (Other)
  Sender: FDA-Public Use
  Company Number: SE-ABBVIE-15K-150-1380545-00

PATIENT
  Age: 58 Year
  Sex: Female
  Weight: 99 kg

DRUGS (1)
  1. HUMIRA [Suspect]
     Active Substance: ADALIMUMAB
     Indication: PSORIATIC ARTHROPATHY
     Route: 058
     Dates: start: 20100526, end: 20141027

REACTIONS (1)
  - Benign salivary gland neoplasm [Unknown]

NARRATIVE: CASE EVENT DATE: 20140510
